FAERS Safety Report 5959094-4 (Version None)
Quarter: 2008Q4

REPORT INFORMATION
  Report Type: 
  Country: None (occurrence: None)
  Receive Date: 20081120
  Receipt Date: 20071115
  Transmission Date: 20090506
  Serious: No
  Sender: FDA-Public Use
  Company Number: A0694762A

PATIENT
  Age: 38 Year
  Sex: Female

DRUGS (3)
  1. BUPROPION HYDROCHLORIDE [Suspect]
     Indication: DEPRESSION
     Route: 048
     Dates: start: 20070901, end: 20070901
  2. ACIPHEX [Concomitant]
  3. PROZAC [Concomitant]

REACTIONS (3)
  - CHEST PAIN [None]
  - LIP SWELLING [None]
  - PRURITUS [None]
